FAERS Safety Report 8893166 (Version 1)
Quarter: 2012Q4

REPORT INFORMATION
  Report Type: Spontaneous
  Country: US (occurrence: None)
  Receive Date: 20121106
  Receipt Date: 20121106
  Transmission Date: 20130627
  Serious: Yes (Death, Hospitalization)
  Sender: FDA-Public Use
  Company Number: None

PATIENT
  Age: 71 Year
  Sex: Female

DRUGS (4)
  1. REVLIMID [Suspect]
     Indication: MULTIPLE MYELOMA
     Dates: start: 200806, end: 200909
  2. REVLIMID [Suspect]
     Indication: MULTIPLE MYELOMA
     Dates: start: 201003, end: 201108
  3. REVLIMID [Suspect]
     Indication: MULTIPLE MYELOMA
     Dates: start: 201209
  4. LEVOTHROID [Concomitant]

REACTIONS (6)
  - Mental status changes [None]
  - Hypercalcaemia [None]
  - Renal failure acute [None]
  - Clostridium difficile colitis [None]
  - Sepsis [None]
  - Urinary tract infection [None]
